FAERS Safety Report 18563846 (Version 22)
Quarter: 2022Q4

REPORT INFORMATION
  Report Type: Other
  Country: AR (occurrence: AR)
  Receive Date: 20201201
  Receipt Date: 20221026
  Transmission Date: 20230112
  Serious: Yes (Life-Threatening, Hospitalization, Other)
  Sender: FDA-Public Use
  Company Number: AR-002147023-PHHY2014AR039248

PATIENT
  Age: 63 Year
  Sex: Female

DRUGS (13)
  1. XOLAIR [Suspect]
     Active Substance: OMALIZUMAB
     Indication: Asthma
     Dosage: 2 DF, QMO (300 MG)
     Route: 058
     Dates: start: 2009
  2. XOLAIR [Suspect]
     Active Substance: OMALIZUMAB
     Dosage: 2 DF, QMO
     Route: 058
     Dates: start: 2012, end: 201703
  3. XOLAIR [Suspect]
     Active Substance: OMALIZUMAB
     Route: 058
     Dates: start: 201712, end: 20191219
  4. XOLAIR [Suspect]
     Active Substance: OMALIZUMAB
     Dosage: 2 DF, QMO
     Route: 058
     Dates: start: 20120318
  5. XOLAIR [Suspect]
     Active Substance: OMALIZUMAB
     Route: 058
     Dates: end: 20200731
  6. XOLAIR [Suspect]
     Active Substance: OMALIZUMAB
     Route: 058
     Dates: end: 202003
  7. XOLAIR [Suspect]
     Active Substance: OMALIZUMAB
     Route: 058
  8. XOLAIR [Suspect]
     Active Substance: OMALIZUMAB
     Route: 058
  9. XOLAIR [Suspect]
     Active Substance: OMALIZUMAB
     Dosage: 300 MG, BIW
     Route: 058
  10. BENADRYL [Suspect]
     Active Substance: DIPHENHYDRAMINE HYDROCHLORIDE
     Indication: Product used for unknown indication
     Route: 065
  11. ATACAND [Concomitant]
     Active Substance: CANDESARTAN CILEXETIL
     Indication: Product used for unknown indication
     Route: 065
  12. OMEPRAZOLE [Concomitant]
     Active Substance: OMEPRAZOLE
     Indication: Product used for unknown indication
     Route: 065
  13. ROGASTRIL [Concomitant]
     Indication: Product used for unknown indication
     Route: 065

REACTIONS (61)
  - Asthma [Not Recovered/Not Resolved]
  - Pseudomonas infection [Not Recovered/Not Resolved]
  - Spinal column injury [Unknown]
  - Food allergy [Unknown]
  - Chronic obstructive pulmonary disease [Unknown]
  - Intervertebral disc compression [Not Recovered/Not Resolved]
  - Immunoglobulins increased [Not Recovered/Not Resolved]
  - Cardiac disorder [Not Recovered/Not Resolved]
  - Memory impairment [Not Recovered/Not Resolved]
  - Hypersensitivity [Recovering/Resolving]
  - Accident [Unknown]
  - Tendon rupture [Unknown]
  - Wrist fracture [Unknown]
  - Back disorder [Unknown]
  - Ligament sprain [Unknown]
  - Discomfort [Unknown]
  - Pain [Unknown]
  - Foot fracture [Unknown]
  - Pneumonia [Recovering/Resolving]
  - White blood cell count increased [Not Recovered/Not Resolved]
  - Productive cough [Not Recovered/Not Resolved]
  - Cough [Not Recovered/Not Resolved]
  - Visual impairment [Not Recovered/Not Resolved]
  - Hypoxia [Unknown]
  - Eye infection fungal [Unknown]
  - Laryngeal oedema [Unknown]
  - Syncope [Unknown]
  - Asthmatic crisis [Unknown]
  - Choking [Unknown]
  - Lung neoplasm [Unknown]
  - Blood pressure increased [Recovered/Resolved]
  - Hand fracture [Unknown]
  - External ear inflammation [Not Recovered/Not Resolved]
  - Insomnia [Unknown]
  - Wheezing [Recovering/Resolving]
  - Snoring [Recovering/Resolving]
  - Osteoarthritis [Unknown]
  - Discouragement [Unknown]
  - Osteoporosis [Not Recovered/Not Resolved]
  - Nervousness [Not Recovered/Not Resolved]
  - Red blood cell count decreased [Not Recovered/Not Resolved]
  - Gait disturbance [Unknown]
  - Sciatica [Not Recovered/Not Resolved]
  - Phlebitis [Unknown]
  - Madarosis [Unknown]
  - Feeling abnormal [Unknown]
  - Tension [Unknown]
  - General physical health deterioration [Unknown]
  - Malaise [Unknown]
  - Anaemia [Unknown]
  - Hypoacusis [Unknown]
  - Fatigue [Unknown]
  - Musculoskeletal chest pain [Not Recovered/Not Resolved]
  - Rib fracture [Unknown]
  - Upper limb fracture [Unknown]
  - Fall [Unknown]
  - Anxiety [Unknown]
  - Dyspnoea [Unknown]
  - Pulpitis dental [Unknown]
  - Product supply issue [Unknown]
  - Product container issue [Unknown]

NARRATIVE: CASE EVENT DATE: 20140301
